FAERS Safety Report 8153915-5 (Version None)
Quarter: 2012Q1

REPORT INFORMATION
  Report Type: 
  Country: None (occurrence: None)
  Receive Date: 20120221
  Receipt Date: 20111212
  Transmission Date: 20120608
  Serious: Yes (Death, Other)
  Sender: FDA-Public Use
  Company Number: SA-ROCHE-1021330

PATIENT

DRUGS (4)
  1. OXALIPLATIN [Suspect]
     Indication: COLORECTAL CANCER METASTATIC
     Route: 065
  2. XELODA [Suspect]
     Indication: COLORECTAL CANCER METASTATIC
     Route: 065
  3. IRINOTECAN HCL [Suspect]
     Indication: COLORECTAL CANCER METASTATIC
     Route: 065
  4. AVASTIN [Suspect]
     Indication: COLORECTAL CANCER METASTATIC
     Route: 065

REACTIONS (9)
  - VOMITING [None]
  - HYPERSENSITIVITY [None]
  - DIARRHOEA [None]
  - THROMBOCYTOPENIA [None]
  - NEUTROPENIA [None]
  - FATIGUE [None]
  - NAUSEA [None]
  - DEATH [None]
  - FEBRILE NEUTROPENIA [None]
